FAERS Safety Report 5551621-4 (Version None)
Quarter: 2007Q4

REPORT INFORMATION
  Report Type: 
  Country: None (occurrence: None)
  Receive Date: 20071212
  Receipt Date: 20071206
  Transmission Date: 20080405
  Serious: Yes (Other)
  Sender: FDA-Public Use
  Company Number: IE-ABBOTT-07P-229-0427530-00

PATIENT
  Age: 5 Year
  Sex: Male

DRUGS (1)
  1. EPILIM [Suspect]
     Indication: EPILEPSY

REACTIONS (2)
  - DISTURBANCE IN ATTENTION [None]
  - HYPOKINESIA [None]
